FAERS Safety Report 26132775 (Version 1)
Quarter: 2025Q4

REPORT INFORMATION
  Report Type: Spontaneous
  Country: EU (occurrence: EU)
  Receive Date: 20251208
  Receipt Date: 20251208
  Transmission Date: 20260118
  Serious: Yes (Other)
  Sender: ABBVIE
  Company Number: EU-SANTENINC-2025-FRA-010683

PATIENT
  Age: 73 Year

DRUGS (2)
  1. CYCLOSPORINE [Suspect]
     Active Substance: CYCLOSPORINE
     Indication: Transplant rejection
     Route: 047
     Dates: start: 2019, end: 202506
  2. DEXAMETHASONE [Suspect]
     Active Substance: DEXAMETHASONE
     Indication: Transplant rejection
     Dosage: TIME INTERVAL: AS NECESSARY
     Route: 050
     Dates: start: 2019

REACTIONS (1)
  - Iatrogenic Kaposi sarcoma [Unknown]
